FAERS Safety Report 6919764-8 (Version None)
Quarter: 2010Q3

REPORT INFORMATION
  Report Type: 
  Country: None (occurrence: None)
  Receive Date: 20100811
  Receipt Date: 20100728
  Transmission Date: 20110219
  Serious: Yes (Death)
  Sender: FDA-Public Use
  Company Number: US-ELI_LILLY_AND_COMPANY-US201006004063

PATIENT
  Sex: Female

DRUGS (19)
  1. FORTEO [Suspect]
     Indication: OSTEOPOROSIS
     Dosage: 20 UG, DAILY (1/D)
     Route: 058
     Dates: start: 20091216
  2. SOMA [Concomitant]
     Dosage: 350 MG, AS NEEDED
  3. OXYCODONE [Concomitant]
     Indication: PAIN
     Dates: start: 20080319
  4. TYLENOL W/ CODEINE NO. 3 [Concomitant]
     Dosage: 30 MG, AS NEEDED
     Dates: start: 20050314
  5. DIPHENHYDRAMINE [Concomitant]
     Indication: HYPERSENSITIVITY
     Dates: start: 20070127
  6. WARFARIN SODIUM [Concomitant]
     Dosage: 10 MG, 2/W
     Dates: start: 20050701
  7. WARFARIN SODIUM [Concomitant]
     Dosage: 7.5 MG, QOD
     Dates: start: 20050701
  8. AMLODIPINE [Concomitant]
     Dosage: 5 MG, DAILY (1/D)
     Dates: start: 20070410
  9. LORAZEPAM [Concomitant]
     Indication: ANXIETY
     Dosage: 0.5 MG, AS NEEDED
     Dates: start: 20070126
  10. SERTRALINE HYDROCHLORIDE [Concomitant]
     Dosage: 200 MG, 2/D
     Dates: start: 20050617
  11. PRAMIPEXOLE DIHYDROCHLORIDE [Concomitant]
     Dosage: 0.125 MG, DAILY (1/D)
     Dates: start: 20050603
  12. CALCIUM WITH VITAMIN D [Concomitant]
     Dosage: 1 D/F, 2/D
     Dates: start: 20070126
  13. MULTI-VITAMIN [Concomitant]
     Dates: start: 20051117
  14. GABAPENTIN [Concomitant]
     Dosage: 600 MG, 3/D
     Dates: start: 20081024
  15. OXYGEN [Concomitant]
     Dosage: 2 LITER, UNK
     Dates: start: 20100419
  16. OMEPRAZOLE [Concomitant]
     Dosage: 20 MG, 2/D
     Dates: start: 20070126
  17. PROMETHAZINE HCL [Concomitant]
     Indication: NAUSEA
     Dosage: 12.4 MG, AS NEEDED
     Dates: start: 20070424
  18. SIMVASTATIN [Concomitant]
     Dates: start: 20071120
  19. VITAMIN D [Concomitant]
     Dosage: 1000 U, DAILY (1/D)
     Dates: start: 20090930

REACTIONS (2)
  - DEATH [None]
  - OEDEMA PERIPHERAL [None]
